FAERS Safety Report 8131174-7 (Version None)
Quarter: 2012Q1

REPORT INFORMATION
  Report Type: 
  Country: None (occurrence: None)
  Receive Date: 20120213
  Receipt Date: 20120203
  Transmission Date: 20120608
  Serious: Yes (Other)
  Sender: FDA-Public Use
  Company Number: BR-SANOFI-AVENTIS-2011SA060514

PATIENT
  Age: 61 Year
  Sex: Female
  Weight: 78 kg

DRUGS (8)
  1. APIDRA [Suspect]
     Dosage: DOSE: 8-4-4-4 IUFORM: CARTRIDGE
     Route: 058
     Dates: start: 20060101
  2. AMITRIPTYLINE HCL [Concomitant]
  3. RANITIDINE [Concomitant]
  4. SUSTRATE [Concomitant]
  5. SIMVASTATIN [Concomitant]
     Route: 048
  6. OMEPRAZOLE [Concomitant]
  7. ALL OTHER THERAPEUTIC PRODUCTS [Concomitant]
     Route: 048
  8. VASTAREL ^BIOPHARMA^ [Concomitant]

REACTIONS (6)
  - INJECTION SITE REACTION [None]
  - INJECTION SITE HAEMATOMA [None]
  - INJECTION SITE NODULE [None]
  - EYE HAEMORRHAGE [None]
  - VISION BLURRED [None]
  - INJECTION SITE PAIN [None]
